FAERS Safety Report 5616161-2 (Version None)
Quarter: 2008Q1

REPORT INFORMATION
  Report Type: 
  Country: None (occurrence: None)
  Receive Date: 20080206
  Receipt Date: 20080203
  Transmission Date: 20080703
  Serious: Yes (Other)
  Sender: FDA-Public Use
  Company Number: US-PFIZER INC-2008010682

PATIENT
  Sex: Male
  Weight: 145.2 kg

DRUGS (4)
  1. LIPITOR [Suspect]
     Indication: BLOOD CHOLESTEROL INCREASED
  2. ACTOS [Concomitant]
  3. DRUG, UNSPECIFIED [Concomitant]
  4. CARDIAC THERAPY [Concomitant]

REACTIONS (3)
  - ABASIA [None]
  - MUSCULAR WEAKNESS [None]
  - MUSCULOSKELETAL PAIN [None]
